FAERS Safety Report 25139661 (Version 1)
Quarter: 2025Q1

REPORT INFORMATION
  Report Type: Spontaneous
  Country: GB (occurrence: GB)
  Receive Date: 20250331
  Receipt Date: 20250331
  Transmission Date: 20250408
  Serious: Yes (Other)
  Sender: AUROBINDO
  Company Number: GB-MHRA-TPP22450551C2666726YC1741940515575

PATIENT
  Age: 75 Year
  Sex: Female
  Weight: 44 kg

DRUGS (9)
  1. NITROFURANTOIN [Suspect]
     Active Substance: NITROFURANTOIN
     Indication: Product used for unknown indication
     Route: 065
     Dates: start: 20250127
  2. MOMETASONE [Concomitant]
     Active Substance: MOMETASONE
     Indication: Ill-defined disorder
     Dosage: 2 DOSAGE FORM, ONCE A DAY (USE TWO SPRAYS INTO EACH NOSTRIL ONCE A DAY)
     Route: 065
     Dates: start: 20250220
  3. DOXYCYCLINE [Concomitant]
     Active Substance: DOXYCYCLINE
     Indication: Ill-defined disorder
     Route: 065
     Dates: start: 20250220, end: 20250227
  4. AVEENO [Concomitant]
     Active Substance: DIMETHICONE\HOMOSALATE\OCTINOXATE\OCTISALATE\TITANIUM DIOXIDE
     Indication: Ill-defined disorder
     Route: 065
     Dates: start: 20230531
  5. QUININE SULFATE [Concomitant]
     Active Substance: QUININE SULFATE
     Indication: Ill-defined disorder
     Route: 065
     Dates: start: 20240516
  6. LANSOPRAZOLE [Concomitant]
     Active Substance: LANSOPRAZOLE
     Indication: Ill-defined disorder
     Dosage: 1 DOSAGE FORM, ONCE A DAY (TAKE ONE CAPSULE ONCE A DAY TO PROTECT THE STOM...)
     Route: 065
     Dates: start: 20240516
  7. BEMPEDOIC ACID\EZETIMIBE [Concomitant]
     Active Substance: BEMPEDOIC ACID\EZETIMIBE
     Indication: Ill-defined disorder
     Route: 065
     Dates: start: 20240606
  8. POLYETHYLENE GLYCOL 3350\POTASSIUM CHLORIDE\SODIUM BICARBONATE\SODIUM [Concomitant]
     Active Substance: POLYETHYLENE GLYCOL 3350\POTASSIUM CHLORIDE\SODIUM BICARBONATE\SODIUM CHLORIDE
     Indication: Ill-defined disorder
     Route: 065
     Dates: start: 20240819
  9. Clinitas [Concomitant]
     Indication: Ill-defined disorder
     Route: 065
     Dates: start: 20240819

REACTIONS (1)
  - Gastrointestinal disorder [Recovering/Resolving]

NARRATIVE: CASE EVENT DATE: 20250127
